FAERS Safety Report 15422237 (Version 1)
Quarter: 2018Q3

REPORT INFORMATION
  Report Type: Report from Study
  Country: US (occurrence: US)
  Receive Date: 20180924
  Receipt Date: 20180924
  Transmission Date: 20181010
  Serious: Yes (Other)
  Sender: FDA-Public Use
  Company Number: US-AMGEN-USASP2018130755

PATIENT
  Age: 37 Year
  Sex: Female

DRUGS (1)
  1. AIMOVIG [Suspect]
     Active Substance: ERENUMAB-AOOE
     Indication: MIGRAINE
     Dosage: 140 MG, UNK
     Route: 065
     Dates: start: 2018

REACTIONS (8)
  - Drug hypersensitivity [Unknown]
  - Lymphadenopathy [Unknown]
  - Cognitive disorder [Unknown]
  - Weight increased [Unknown]
  - Vomiting [Unknown]
  - Hyperhidrosis [Unknown]
  - Vertigo [Unknown]
  - Skin mass [Unknown]

NARRATIVE: CASE EVENT DATE: 2018
